FAERS Safety Report 21895459 (Version 2)
Quarter: 2023Q1

REPORT INFORMATION
  Report Type: Report from Study
  Country: US (occurrence: US)
  Receive Date: 20230123
  Receipt Date: 20230130
  Transmission Date: 20230418
  Serious: No
  Sender: FDA-Public Use
  Company Number: US-SA-SAC20230120000186

PATIENT
  Age: 43 Year
  Sex: Female

DRUGS (6)
  1. AUBAGIO [Suspect]
     Active Substance: TERIFLUNOMIDE
     Indication: Multiple sclerosis
     Dosage: 14 MG, QD
     Route: 048
     Dates: start: 20221226
  2. VITAMIN D NOS [Concomitant]
     Active Substance: VITAMIN D NOS
  3. BIOTIN [Concomitant]
     Active Substance: BIOTIN
  4. LOSARTAN [Concomitant]
     Active Substance: LOSARTAN
  5. VITAMINS [Concomitant]
     Active Substance: VITAMINS
  6. HYDROCHLOROTHIAZIDE [Concomitant]
     Active Substance: HYDROCHLOROTHIAZIDE

REACTIONS (2)
  - Fatigue [Not Recovered/Not Resolved]
  - Headache [Recovered/Resolved]

NARRATIVE: CASE EVENT DATE: 20221226
